FAERS Safety Report 7554679-6 (Version None)
Quarter: 2011Q2

REPORT INFORMATION
  Report Type: 
  Country: None (occurrence: None)
  Receive Date: 20110617
  Receipt Date: 20110606
  Transmission Date: 20111010
  Serious: Yes (Life-Threatening, Hospitalization, Disabling, Other)
  Sender: FDA-Public Use
  Company Number: JP-JNJFOC-20110603365

PATIENT
  Sex: Female

DRUGS (10)
  1. ACETAMINOPHEN [Concomitant]
     Indication: NASOPHARYNGITIS
     Route: 048
     Dates: start: 20110521, end: 20110524
  2. THEO-DUR [Concomitant]
     Indication: BRONCHIECTASIS
     Dosage: 2 DF
     Route: 048
     Dates: end: 20110524
  3. HOKUNALIN [Concomitant]
     Indication: BRONCHIECTASIS
     Route: 062
     Dates: end: 20110524
  4. LEVOFLOXACIN [Suspect]
     Indication: NASOPHARYNGITIS
     Route: 048
     Dates: start: 20110521, end: 20110524
  5. RESPLEN [Concomitant]
     Indication: NASOPHARYNGITIS
     Route: 048
     Dates: start: 20110521, end: 20110524
  6. DOGMATYL [Concomitant]
     Indication: PRODUCT USED FOR UNKNOWN INDICATION
     Dosage: 2 DF
     Route: 048
     Dates: end: 20110524
  7. MUCOSIL-10 [Concomitant]
     Indication: BRONCHIECTASIS
     Route: 048
     Dates: end: 20110524
  8. ERYTHROMYCIN [Concomitant]
     Indication: BRONCHIECTASIS
     Route: 048
     Dates: end: 20110524
  9. LEVOFLOXACIN [Suspect]
     Indication: UPPER RESPIRATORY TRACT INFLAMMATION
     Route: 048
     Dates: start: 20110521, end: 20110524
  10. MUCODYNE [Concomitant]
     Indication: BRONCHIECTASIS
     Dosage: 6 DF
     Route: 048
     Dates: end: 20110524

REACTIONS (2)
  - STATUS EPILEPTICUS [None]
  - APHASIA [None]
